FAERS Safety Report 12133525 (Version 15)
Quarter: 2017Q1

REPORT INFORMATION
  Report Type: Spontaneous
  Country: US (occurrence: US)
  Receive Date: 20160301
  Receipt Date: 20170328
  Transmission Date: 20170428
  Serious: Yes (Death, Congenital Anomaly, Other)
  Sender: FDA-Public Use
  Company Number: US-PFIZER INC-2016125455

PATIENT
  Sex: Male
  Weight: 2 kg

DRUGS (6)
  1. PROCARDIA [Suspect]
     Active Substance: NIFEDIPINE
     Dosage: 10 MG, UNK
     Route: 064
     Dates: start: 20070930
  2. NIFEDIPINE. [Suspect]
     Active Substance: NIFEDIPINE
     Dosage: 10 MG, 4X/DAY (A DOSE OF 10 MG FOR EVERY 6 HOURS)
     Route: 064
     Dates: start: 200709
  3. PRENATAL VITAMINS [Concomitant]
     Active Substance: VITAMINS
     Dosage: UNK
     Route: 064
     Dates: start: 20070829
  4. PROCARDIA [Suspect]
     Active Substance: NIFEDIPINE
     Dosage: 10 MG, 3X/DAY
     Route: 064
     Dates: start: 20070928, end: 20070930
  5. NIFEDIPINE. [Suspect]
     Active Substance: NIFEDIPINE
     Indication: TOCOLYSIS
     Dosage: LOADING DOSE OF 20 MG
     Route: 064
     Dates: start: 20070928
  6. NIFEDIPINE. [Suspect]
     Active Substance: NIFEDIPINE
     Dosage: 10 MG EVERY 20 MINUTES FOR TWO DOSES
     Route: 064
     Dates: start: 200709

REACTIONS (8)
  - Cerebral palsy [Fatal]
  - Foetal heart rate deceleration abnormality [Unknown]
  - Hypoxic-ischaemic encephalopathy [Fatal]
  - Tachycardia foetal [Unknown]
  - Dyspnoea [Fatal]
  - Disturbance of thermoregulation of newborn [Fatal]
  - Premature baby [Unknown]
  - Maternal exposure during pregnancy [Fatal]

NARRATIVE: CASE EVENT DATE: 20071002
